FAERS Safety Report 11092802 (Version 1)
Quarter: 2015Q2

REPORT INFORMATION
  Report Type: Spontaneous
  Country: FR (occurrence: None)
  Receive Date: 20150504
  Receipt Date: 20150504
  Transmission Date: 20150821
  Serious: Yes (Hospitalization)
  Sender: FDA-Public Use
  Company Number: 2841902

PATIENT
  Age: 80 Year
  Sex: Male

DRUGS (5)
  1. (ZOXAN) [Concomitant]
  2. (FINASTERIDE) [Concomitant]
  3. (GEMCITABINE HYDROCHLORIDE) [Suspect]
     Active Substance: GEMCITABINE HYDROCHLORIDE
     Indication: LUNG NEOPLASM MALIGNANT
     Dosage: 938 MG/M 2  MILLIGRAM(S)/SQ. METER (1 DAY )
     Dates: start: 20150309, end: 20150317
  4. (TEMERIT) [Concomitant]
  5. (PRAVASTATIN SODIUM) [Concomitant]

REACTIONS (1)
  - Chest pain [None]

NARRATIVE: CASE EVENT DATE: 20150317
